FAERS Safety Report 10264558 (Version 1)
Quarter: 2014Q2

REPORT INFORMATION
  Report Type: Spontaneous
  Country: US (occurrence: US)
  Receive Date: 20140627
  Receipt Date: 20140627
  Transmission Date: 20141212
  Serious: Yes (Hospitalization)
  Sender: FDA-Public Use
  Company Number: US-BRACCO-011016

PATIENT
  Age: 67 Year
  Sex: Female

DRUGS (4)
  1. IOPAMIDOL [Suspect]
     Indication: ARTERIOGRAM CORONARY
     Route: 042
  2. FENTANYL [Concomitant]
  3. HYDROCHLOROTHIAZIDE [Concomitant]
  4. MIDAZOLAM [Concomitant]

REACTIONS (1)
  - Pancreatitis [Recovered/Resolved]
